FAERS Safety Report 5478650-3 (Version None)
Quarter: 2007Q4

REPORT INFORMATION
  Report Type: 
  Country: None (occurrence: None)
  Receive Date: 20071005
  Receipt Date: 20070925
  Transmission Date: 20080405
  Serious: Yes (Hospitalization)
  Sender: FDA-Public Use
  Company Number: US-GENENTECH-247314

PATIENT
  Sex: Female
  Weight: 67.12 kg

DRUGS (3)
  1. HERCEPTIN [Suspect]
     Indication: BREAST CANCER METASTATIC
     Dosage: 126 MG, 1/WEEK
     Route: 042
     Dates: start: 20070206
  2. ABRAXANE [Concomitant]
     Dosage: 160 MG, UNK
     Dates: start: 20070206
  3. ARANESP [Concomitant]
     Indication: DRUG USE FOR UNKNOWN INDICATION
     Dosage: 300 MG, QOW

REACTIONS (1)
  - PULMONARY EMBOLISM [None]
